FAERS Safety Report 19280777 (Version 1)
Quarter: 2021Q2

REPORT INFORMATION
  Report Type: Spontaneous
  Country: FR (occurrence: FR)
  Receive Date: 20210520
  Receipt Date: 20210520
  Transmission Date: 20210717
  Serious: Yes (Other)
  Sender: FDA-Public Use
  Company Number: FR-PFIZER INC-2021572471

PATIENT
  Age: 29 Year
  Sex: Female

DRUGS (1)
  1. IMETH [Suspect]
     Active Substance: METHOTREXATE SODIUM
     Indication: SYSTEMIC SCLERODERMA
     Dosage: 10 MG, CYCLIC (ONCE EVERY 7DAYS)
     Route: 048
     Dates: start: 201605, end: 20210321

REACTIONS (6)
  - Swelling [Recovered/Resolved]
  - Hypoaesthesia [Recovered/Resolved]
  - Illness [Recovered/Resolved]
  - Pyrexia [Recovered/Resolved]
  - Paraesthesia [Recovered/Resolved]
  - Off label use [Unknown]

NARRATIVE: CASE EVENT DATE: 201605
